FAERS Safety Report 13988909 (Version 2)
Quarter: 2018Q3

REPORT INFORMATION
  Report Type: Spontaneous
  Country: US (occurrence: US)
  Receive Date: 20170919
  Receipt Date: 20180704
  Transmission Date: 20181010
  Serious: No
  Sender: FDA-Public Use
  Company Number: US-BIOGEN-2017BI00457362

PATIENT
  Sex: Male

DRUGS (2)
  1. TECFIDERA [Suspect]
     Active Substance: DIMETHYL FUMARATE
     Indication: MULTIPLE SCLEROSIS
     Route: 065
     Dates: start: 2015
  2. TECFIDERA [Suspect]
     Active Substance: DIMETHYL FUMARATE
     Route: 065
     Dates: start: 20170607

REACTIONS (9)
  - Dry mouth [Not Recovered/Not Resolved]
  - Drug hypersensitivity [Unknown]
  - Immune system disorder [Unknown]
  - Multiple sclerosis [Unknown]
  - Optic neuritis [Unknown]
  - Muscular weakness [Not Recovered/Not Resolved]
  - Abdominal pain [Unknown]
  - Memory impairment [Not Recovered/Not Resolved]
  - Flushing [Recovered/Resolved]
